FAERS Safety Report 5862963-7 (Version None)
Quarter: 2008Q3

REPORT INFORMATION
  Report Type: 
  Country: None (occurrence: None)
  Receive Date: 20080828
  Receipt Date: 20080826
  Transmission Date: 20090109
  Serious: Yes (Death)
  Sender: FDA-Public Use
  Company Number: B0522551A

PATIENT
  Age: 20 Year
  Sex: Female

DRUGS (9)
  1. FLOLAN [Suspect]
     Indication: PULMONARY ARTERIAL HYPERTENSION
     Route: 042
     Dates: start: 20060301, end: 20070501
  2. BERAPROST SODIUM [Concomitant]
     Indication: PULMONARY ARTERIAL HYPERTENSION
     Route: 048
  3. BOSENTAN [Concomitant]
     Indication: PULMONARY ARTERIAL HYPERTENSION
     Route: 048
  4. ACARDI [Concomitant]
     Dosage: 1.25MG PER DAY
     Route: 048
     Dates: start: 20070501
  5. LUPRAC [Concomitant]
     Dosage: 24MG PER DAY
     Route: 048
     Dates: start: 20070501
  6. ANCORON [Concomitant]
     Dosage: 200MG PER DAY
     Dates: start: 20070501
  7. RISUMIC [Concomitant]
     Dosage: 20MG PER DAY
     Route: 048
     Dates: start: 20070501
  8. ALDACTONE [Concomitant]
     Dosage: 25MG PER DAY
     Route: 048
     Dates: start: 20070501
  9. FUROSEMIDE [Concomitant]
     Dosage: 40MG PER DAY
     Dates: start: 20070501

REACTIONS (7)
  - BRAIN NATRIURETIC PEPTIDE INCREASED [None]
  - CARDIOMYOPATHY [None]
  - DISEASE PROGRESSION [None]
  - PULMONARY ARTERIAL HYPERTENSION [None]
  - PULMONARY ARTERY DILATATION [None]
  - RIGHT VENTRICULAR FAILURE [None]
  - WEIGHT INCREASED [None]
